FAERS Safety Report 21846165 (Version 3)
Quarter: 2023Q1

REPORT INFORMATION
  Report Type: Report from Study
  Country: US (occurrence: US)
  Receive Date: 20230111
  Receipt Date: 20230206
  Transmission Date: 20230417
  Serious: Yes (Hospitalization, Other)
  Sender: FDA-Public Use
  Company Number: US-GBT-019230

PATIENT
  Age: 24 Year
  Sex: Male

DRUGS (11)
  1. OXBRYTA [Suspect]
     Active Substance: VOXELOTOR
     Indication: Anaemia
     Dates: start: 20200109
  2. Buprenorphine (Butrans) 10 mcg/hr transdermal patch [Concomitant]
     Indication: Sickle cell disease
     Dosage: 1 PATCH APPLY EVERY WEEK
     Route: 062
     Dates: start: 20220629
  3. MS CONTIN [Concomitant]
     Active Substance: MORPHINE SULFATE
     Indication: Sickle cell disease
     Route: 048
     Dates: start: 20191213, end: 20220520
  4. GABAPENTIN [Concomitant]
     Active Substance: GABAPENTIN
     Indication: Sickle cell disease
     Dosage: TIME INTERVAL: 0.33333333 DAYS
     Route: 048
     Dates: start: 20211220
  5. GLUTAMINE [Concomitant]
     Active Substance: GLUTAMINE
     Indication: Sickle cell disease
     Route: 048
     Dates: start: 20190603
  6. Hydromorphone (dilaudid) [Concomitant]
     Indication: Sickle cell disease
     Dosage: AS NECESSARY
     Route: 048
     Dates: start: 20220401, end: 20220507
  7. HYDROXYUREA [Concomitant]
     Active Substance: HYDROXYUREA
     Indication: Sickle cell disease
     Route: 048
     Dates: start: 20160926
  8. OXYCODONE [Concomitant]
     Active Substance: OXYCODONE
     Indication: Sickle cell disease
     Dosage: AS NECESSARY
     Route: 048
     Dates: start: 20211220
  9. COVID-19 vacc, mRNA (Pfizer) [Concomitant]
     Indication: COVID-19 prophylaxis
     Dosage: 30MCG ONCE
     Route: 030
     Dates: start: 20220506, end: 20220506
  10. FOLIC ACID [Concomitant]
     Active Substance: FOLIC ACID
     Indication: Sickle cell disease
     Route: 048
  11. Ergocalciferol (Vitamin D2) 50,000 Unit capsule [Concomitant]
     Indication: Vitamin D deficiency
     Dosage: 50,000 UNITS
     Route: 048

REACTIONS (3)
  - Acute chest syndrome [Recovered/Resolved]
  - Cerebrovascular accident [Recovered/Resolved]
  - Sickle cell anaemia with crisis [Recovered/Resolved]

NARRATIVE: CASE EVENT DATE: 20220503
